FAERS Safety Report 22093300 (Version 1)
Quarter: 2023Q1

REPORT INFORMATION
  Report Type: Spontaneous
  Country: IN (occurrence: None)
  Receive Date: 20230313
  Receipt Date: 20230313
  Transmission Date: 20230418
  Serious: Yes (Other)
  Sender: FDA-Public Use
  Company Number: None

PATIENT
  Age: 4 Year
  Sex: Female

DRUGS (13)
  1. SILDENAFIL [Suspect]
     Active Substance: SILDENAFIL
     Indication: Pulmonary hypertension
     Dosage: ORAL
     Route: 048
  2. FUROSEMIDE [Suspect]
     Active Substance: FUROSEMIDE
     Indication: Pulmonary hypertension
     Route: 042
  3. VASOPRESSIN [Suspect]
     Active Substance: VASOPRESSIN
  4. MILRINONE [Suspect]
     Active Substance: MILRINONE
  5. EPINEPHRINE [Suspect]
     Active Substance: EPINEPHRINE
  6. MEROPENEM [Suspect]
     Active Substance: MEROPENEM
  7. LEVOFLOXACIN [Suspect]
     Active Substance: LEVOFLOXACIN
  8. FLUCONAZOLE [Suspect]
     Active Substance: FLUCONAZOLE
  9. DEXAMETHASONE [Suspect]
     Active Substance: DEXAMETHASONE
  10. REMDESIVIR [Suspect]
     Active Substance: REMDESIVIR
  11. METHYLPREDNISOLONE [Suspect]
     Active Substance: METHYLPREDNISOLONE
  12. HEPARIN [Suspect]
     Active Substance: HEPARIN SODIUM
  13. IMMUNE GLOBULIN NOS [Suspect]
     Active Substance: IMMUNE GLOBULIN NOS

REACTIONS (18)
  - Drug ineffective [None]
  - COVID-19 pneumonia [None]
  - SARS-CoV-2 test positive [None]
  - Systemic inflammatory response syndrome [None]
  - Hypoglycaemia neonatal [None]
  - Hypoglycaemia [None]
  - Anuria [None]
  - Lethargy [None]
  - Poor feeding infant [None]
  - Neonatal respiratory distress [None]
  - Shock [None]
  - Pulmonary haemorrhage [None]
  - Patent ductus arteriosus [None]
  - Off label use [None]
  - Fibrin D dimer increased [None]
  - White blood cell count increased [None]
  - Respiratory failure [None]
  - Pulmonary hypertension [None]
